FAERS Safety Report 4368680-7 (Version None)
Quarter: 2004Q2

REPORT INFORMATION
  Report Type: 
  Country: None (occurrence: None)
  Receive Date: 20040602
  Receipt Date: 20040518
  Transmission Date: 20050107
  Serious: Yes (Hospitalization)
  Sender: FDA-Public Use
  Company Number: MESS00304001377

PATIENT
  Age: 60 Year
  Sex: Female
  Weight: 60 kg

DRUGS (3)
  1. ROWASA [Suspect]
     Indication: COLITIS ULCERATIVE
     Dosage: 500 MG DAILY RC
     Dates: start: 19950101
  2. IKARAN LP 5 MG (DIHYDROERGOTAMINE MESILATE) [Concomitant]
  3. LESCOL 20 MG (FLUVASTATIN SODIUM) [Concomitant]

REACTIONS (1)
  - CHEST X-RAY ABNORMAL [None]
